FAERS Safety Report 7130221-9 (Version None)
Quarter: 2010Q4

REPORT INFORMATION
  Report Type: 
  Country: None (occurrence: None)
  Receive Date: 20101116
  Receipt Date: 20101103
  Transmission Date: 20110411
  Serious: Yes (Death, Life-Threatening, Disabling)
  Sender: FDA-Public Use
  Company Number: OSCN-NO-0604S-0093

PATIENT
  Age: 47 Year
  Sex: Male

DRUGS (4)
  1. OMNISCAN [Suspect]
     Indication: PRODUCT USED FOR UNKNOWN INDICATION
     Dosage: SINGLE DOSE ; 18 ML, SINGLE DOSE, I.V. ; SINGLE DOSE ; 15 ML, SINGLE DOSE
     Route: 042
     Dates: start: 20030416, end: 20030416
  2. OMNISCAN [Suspect]
     Indication: PRODUCT USED FOR UNKNOWN INDICATION
     Dosage: SINGLE DOSE ; 18 ML, SINGLE DOSE, I.V. ; SINGLE DOSE ; 15 ML, SINGLE DOSE
     Route: 042
     Dates: start: 20040211, end: 20040211
  3. OMNISCAN [Suspect]
     Indication: PRODUCT USED FOR UNKNOWN INDICATION
     Dosage: SINGLE DOSE ; 18 ML, SINGLE DOSE, I.V. ; SINGLE DOSE ; 15 ML, SINGLE DOSE
     Route: 042
     Dates: start: 20041122, end: 20041122
  4. OMNISCAN [Suspect]
     Indication: PRODUCT USED FOR UNKNOWN INDICATION
     Dosage: SINGLE DOSE ; 18 ML, SINGLE DOSE, I.V. ; SINGLE DOSE ; 15 ML, SINGLE DOSE
     Route: 042
     Dates: start: 20050519, end: 20050519

REACTIONS (10)
  - BLINDNESS [None]
  - CACHEXIA [None]
  - HEADACHE [None]
  - HEARING IMPAIRED [None]
  - MOVEMENT DISORDER [None]
  - MUSCULOSKELETAL STIFFNESS [None]
  - NECK PAIN [None]
  - NEPHROGENIC SYSTEMIC FIBROSIS [None]
  - PAIN OF SKIN [None]
  - PNEUMONIA [None]
